FAERS Safety Report 6198765-4 (Version None)
Quarter: 2009Q2

REPORT INFORMATION
  Report Type: 
  Country: None (occurrence: None)
  Receive Date: 20090521
  Receipt Date: 20090512
  Transmission Date: 20091009
  Serious: Yes (Hospitalization)
  Sender: FDA-Public Use
  Company Number: CA-BAUSCH-2009BL002277

PATIENT
  Age: 39 Year
  Sex: Female

DRUGS (2)
  1. CIPROFLOXACIN [Suspect]
     Indication: PERIDIVERTICULAR ABSCESS
     Route: 048
  2. METRONIDAZOLE [Concomitant]
     Indication: PERIDIVERTICULAR ABSCESS
     Route: 048

REACTIONS (1)
  - HEPATOTOXICITY [None]
